FAERS Safety Report 9150745 (Version 1)
Quarter: 2013Q1

REPORT INFORMATION
  Report Type: Spontaneous
  Country: US (occurrence: US)
  Receive Date: 20130308
  Receipt Date: 20130308
  Transmission Date: 20140127
  Serious: No
  Sender: FDA-Public Use
  Company Number: US-GLAXOSMITHKLINE-A0962607A

PATIENT
  Age: 30 Year
  Sex: Male

DRUGS (1)
  1. NICORETTE FRESH MINT [Suspect]
     Indication: EX-TOBACCO USER
     Dates: start: 20120102, end: 20120113

REACTIONS (9)
  - Vomiting [Recovered/Resolved]
  - Retching [Recovered/Resolved]
  - Malaise [Recovered/Resolved]
  - Oropharyngeal discomfort [Recovered/Resolved]
  - Dry throat [Recovered/Resolved]
  - Oral discomfort [Recovered/Resolved]
  - Paraesthesia oral [Recovered/Resolved]
  - Hypoaesthesia oral [Recovered/Resolved]
  - Suffocation feeling [Recovered/Resolved]
